FAERS Safety Report 8551147-X (Version None)
Quarter: 2012Q3

REPORT INFORMATION
  Report Type: 
  Country: None (occurrence: None)
  Receive Date: 20120730
  Receipt Date: 20111024
  Transmission Date: 20120928
  Serious: No
  Sender: FDA-Public Use
  Company Number: US-ALLERGAN-1114031US

PATIENT
  Age: 79 Year
  Sex: Female
  Weight: 61.224 kg

DRUGS (1)
  1. LUMIGAN [Suspect]
     Indication: PRODUCT USED FOR UNKNOWN INDICATION
     Dosage: 2 GTT, QHS
     Route: 047

REACTIONS (3)
  - EYELASH THICKENING [None]
  - MADAROSIS [None]
  - CONTUSION [None]
